FAERS Safety Report 5017530-4 (Version None)
Quarter: 2006Q2

REPORT INFORMATION
  Report Type: 
  Country: None (occurrence: None)
  Receive Date: 20060601
  Receipt Date: 20060601
  Transmission Date: 20061013
  Serious: Yes (Life-Threatening)
  Sender: FDA-Public Use
  Company Number: None

PATIENT
  Sex: Female

DRUGS (2)
  1. GABAPENTIN [Suspect]
     Indication: ANXIETY
     Dosage: 800 MG 2 X DAY PO
     Route: 048
     Dates: start: 20050101
  2. GABAPENTIN [Suspect]
     Indication: CONVULSION
     Dosage: 800 MG 2 X DAY PO
     Route: 048
     Dates: start: 20050101

REACTIONS (2)
  - RASH [None]
  - RESPIRATORY DISTRESS [None]
